FAERS Safety Report 7162295-3 (Version None)
Quarter: 2010Q4

REPORT INFORMATION
  Report Type: 
  Country: None (occurrence: None)
  Receive Date: 20101215
  Receipt Date: 20101213
  Transmission Date: 20110411
  Serious: Yes (Other)
  Sender: FDA-Public Use
  Company Number: FR-ROCHE-746300

PATIENT
  Age: 37 Year
  Sex: Female

DRUGS (7)
  1. PEGASYS [Suspect]
     Indication: HEPATITIS C
     Route: 058
     Dates: start: 20101129, end: 20101201
  2. PEGASYS [Suspect]
     Route: 058
     Dates: start: 20101206
  3. COPEGUS [Suspect]
     Indication: HEPATITIS C
     Route: 048
     Dates: start: 20101129, end: 20101201
  4. COPEGUS [Suspect]
     Route: 048
     Dates: start: 20101208
  5. SEROPLEX [Concomitant]
  6. AOTAL [Concomitant]
  7. SERESTA [Concomitant]

REACTIONS (4)
  - FACE OEDEMA [None]
  - FLUSHING [None]
  - GLOSSODYNIA [None]
  - TONGUE OEDEMA [None]
